FAERS Safety Report 21027231 (Version 2)
Quarter: 2022Q3

REPORT INFORMATION
  Report Type: Spontaneous
  Country: CN (occurrence: CN)
  Receive Date: 20220630
  Receipt Date: 20220708
  Transmission Date: 20221027
  Serious: Yes (Other)
  Sender: FDA-Public Use
  Company Number: CN-GLAXOSMITHKLINE-CN2022APC097086

PATIENT

DRUGS (1)
  1. SERETIDE [Suspect]
     Active Substance: FLUTICASONE PROPIONATE\SALMETEROL XINAFOATE
     Indication: Asthma
     Dosage: 1 PUFF(S), BID, 50/100 UG, 60 INHALATIONS
     Route: 055
     Dates: start: 202202

REACTIONS (3)
  - Foreign body in throat [Unknown]
  - Oropharyngeal discomfort [Unknown]
  - Nausea [Unknown]
